FAERS Safety Report 13925029 (Version 2)
Quarter: 2017Q4

REPORT INFORMATION
  Report Type: Spontaneous
  Country: US (occurrence: US)
  Receive Date: 20170831
  Receipt Date: 20171012
  Transmission Date: 20180320
  Serious: No
  Sender: FDA-Public Use
  Company Number: PHEH2017US026759

PATIENT
  Sex: Female

DRUGS (1)
  1. VIVELLE-DOT [Suspect]
     Active Substance: ESTRADIOL
     Indication: PRODUCT USED FOR UNKNOWN INDICATION
     Dosage: 0.5 MG, UNK
     Route: 062

REACTIONS (8)
  - Malaise [Unknown]
  - Product quality issue [Unknown]
  - Heart rate increased [Unknown]
  - Muscle spasms [Unknown]
  - Dizziness [Unknown]
  - Product packaging issue [Unknown]
  - Nausea [Unknown]
  - Drug ineffective [Unknown]
